FAERS Safety Report 23013571 (Version 3)
Quarter: 2023Q4

REPORT INFORMATION
  Report Type: Spontaneous
  Country: US (occurrence: US)
  Receive Date: 20231001
  Receipt Date: 20231014
  Transmission Date: 20240109
  Serious: No
  Sender: FDA-Public Use
  Company Number: US-SANOFI-01779057

PATIENT
  Sex: Female

DRUGS (1)
  1. DUPIXENT [Suspect]
     Active Substance: DUPILUMAB
     Dosage: UNK
     Route: 065
     Dates: start: 20230922

REACTIONS (1)
  - Injection site vesicles [Not Recovered/Not Resolved]

NARRATIVE: CASE EVENT DATE: 20230922
